FAERS Safety Report 23710657 (Version 1)
Quarter: 2024Q2

REPORT INFORMATION
  Report Type: Spontaneous
  Country: RU (occurrence: RU)
  Receive Date: 20240405
  Receipt Date: 20240405
  Transmission Date: 20240716
  Serious: Yes (Hospitalization, Other)
  Sender: FDA-Public Use
  Company Number: RU-IPCA LABORATORIES LIMITED-IPC-2024-RU-000803

PATIENT

DRUGS (1)
  1. WARFARIN SODIUM [Suspect]
     Active Substance: WARFARIN SODIUM
     Indication: Transient ischaemic attack
     Dosage: UNK
     Route: 065

REACTIONS (2)
  - Skin necrosis [Recovered/Resolved]
  - Hypercoagulation [Recovered/Resolved]
